FAERS Safety Report 24407200 (Version 3)
Quarter: 2024Q4

REPORT INFORMATION
  Report Type: Spontaneous
  Country: US (occurrence: US)
  Receive Date: 20241007
  Receipt Date: 20241023
  Transmission Date: 20250115
  Serious: No
  Sender: ABBVIE
  Company Number: US-ABBVIE-5945470

PATIENT
  Age: 39 Year
  Sex: Male

DRUGS (1)
  1. MAVYRET [Suspect]
     Active Substance: GLECAPREVIR\PIBRENTASVIR
     Indication: Hepatitis C
     Dosage: FORM STRENGTH 40 MG
     Route: 048
     Dates: start: 20240918, end: 20241001

REACTIONS (4)
  - Abdominal pain [Recovering/Resolving]
  - Abdominal rigidity [Recovering/Resolving]
  - Hepatic pain [Recovering/Resolving]
  - Chromaturia [Recovering/Resolving]

NARRATIVE: CASE EVENT DATE: 20240901
